FAERS Safety Report 5576160-6 (Version None)
Quarter: 2007Q4

REPORT INFORMATION
  Report Type: 
  Country: None (occurrence: None)
  Receive Date: 20071226
  Receipt Date: 20071210
  Transmission Date: 20080405
  Serious: Yes (Disabling)
  Sender: FDA-Public Use
  Company Number: ADE2007-0086

PATIENT
  Age: 63 Year
  Sex: Male

DRUGS (10)
  1. ATENOLOL [Suspect]
     Dosage: 50 MG
  2. RAMIPRIL [Suspect]
     Dosage: 10 MG- PO
     Route: 048
     Dates: start: 20010512
  3. SODIUM AUROTHIOMALATE [Concomitant]
     Indication: RHEUMATOID ARTHRITIS
     Dosage: 50MG -MONTHLY-INJECTION
  4. AMLODIPINE [Concomitant]
  5. ASPIRIN [Concomitant]
  6. ATORVASTATIN CALCIUM [Concomitant]
  7. CLOPIDOGREL [Concomitant]
  8. ISOSORBIDE MONONITRATE 120MG [Concomitant]
  9. NICORANDIL 20MG [Concomitant]
  10. PREDNISOLONE [Suspect]

REACTIONS (5)
  - ANGINA PECTORIS [None]
  - DRUG INTERACTION [None]
  - HYPOTENSION [None]
  - NAUSEA [None]
  - SYNCOPE VASOVAGAL [None]
